FAERS Safety Report 23038415 (Version 6)
Quarter: 2024Q2

REPORT INFORMATION
  Report Type: Spontaneous
  Country: US (occurrence: US)
  Receive Date: 20231006
  Receipt Date: 20240401
  Transmission Date: 20240716
  Serious: No
  Sender: FDA-Public Use
  Company Number: US-PFIZER INC-202300302120

PATIENT
  Age: 13 Year
  Sex: Female
  Weight: 47.63 kg

DRUGS (1)
  1. GENOTROPIN [Suspect]
     Active Substance: SOMATROPIN
     Indication: Blood growth hormone decreased
     Dosage: UNK, 1X/DAY (1.8 INJECTION ONCE A DAY)
     Dates: start: 2014

REACTIONS (3)
  - Expired device used [Unknown]
  - Device information output issue [Unknown]
  - Device delivery system issue [Unknown]
